FAERS Safety Report 8458500-3 (Version None)
Quarter: 2012Q2

REPORT INFORMATION
  Report Type: 
  Country: None (occurrence: None)
  Receive Date: 20120622
  Receipt Date: 20120611
  Transmission Date: 20120825
  Serious: Yes (Hospitalization, Other)
  Sender: FDA-Public Use
  Company Number: US-ELI_LILLY_AND_COMPANY-US201202002702

PATIENT
  Age: 76 Year
  Sex: Male

DRUGS (12)
  1. OMEPRAZOLE [Concomitant]
     Dosage: UNK, QD
  2. ASPIRIN [Concomitant]
     Dosage: 81 MG, UNK
  3. FUROSEMIDE [Concomitant]
     Dosage: 20 MG, UNK
  4. COUMADIN [Concomitant]
     Dosage: 6 MG, (ALSO REPORTED 5 MG)
  5. CARVEDILOL [Concomitant]
     Indication: CARDIAC DISORDER
  6. ASCORBIC ACID [Concomitant]
  7. LOSARTAN POTASSIUM [Concomitant]
  8. INSULIN [Concomitant]
  9. FORTEO [Suspect]
     Indication: OSTEOPOROSIS
     Dosage: 20 UG, QD
     Route: 065
     Dates: start: 20110101
  10. FORTEO [Suspect]
     Dosage: 20 UG, QD
     Route: 065
  11. FORTEO [Suspect]
     Dosage: 20 UG, QD
     Route: 065
  12. FORTEO [Suspect]
     Dosage: 20 UG, QD
     Route: 065

REACTIONS (7)
  - COLON CANCER [None]
  - HIP FRACTURE [None]
  - FALL [None]
  - EPISTAXIS [None]
  - EAR HAEMORRHAGE [None]
  - HYPOTENSION [None]
  - METASTASES TO LYMPH NODES [None]
